FAERS Safety Report 4583504-0 (Version None)
Quarter: 2005Q1

REPORT INFORMATION
  Report Type: 
  Country: None (occurrence: None)
  Receive Date: 20050211
  Receipt Date: 20050201
  Transmission Date: 20050727
  Serious: Yes (Other)
  Sender: FDA-Public Use
  Company Number: 2004114437

PATIENT
  Age: 81 Year
  Sex: Female
  Weight: 61.6892 kg

DRUGS (3)
  1. NEURONTIN [Suspect]
     Indication: FIBROMYALGIA
     Dosage: 1200 MG (1 IN 1 D)
  2. ALL OTHER THERAPEUTIC PRODUCTS (ALL OTHER THERAPEUTIC PRODUCTS) [Concomitant]
  3. DYAZIDE [Concomitant]

REACTIONS (5)
  - CONDITION AGGRAVATED [None]
  - MACULAR DEGENERATION [None]
  - NEUROPATHIC PAIN [None]
  - PAIN [None]
  - TREATMENT NONCOMPLIANCE [None]
